FAERS Safety Report 11046506 (Version 1)
Quarter: 2015Q2

REPORT INFORMATION
  Report Type: Spontaneous
  Country: US (occurrence: US)
  Receive Date: 20150420
  Receipt Date: 20150420
  Transmission Date: 20150821
  Serious: No
  Sender: FDA-Public Use
  Company Number: US-TEVA-498545USA

PATIENT
  Sex: Male
  Weight: 72.64 kg

DRUGS (6)
  1. LIVALO (PITAVASTATIN CALCIUM) [Concomitant]
  2. NIASPAN [Suspect]
     Active Substance: NIACIN
     Indication: HIGH DENSITY LIPOPROTEIN DECREASED
     Dates: start: 2009, end: 201401
  3. ZETIA [Concomitant]
     Active Substance: EZETIMIBE
  4. NIASPAN [Suspect]
     Active Substance: NIACIN
     Indication: BLOOD TRIGLYCERIDES INCREASED
  5. NICOTINIC ACID [Suspect]
     Active Substance: NIACIN
     Indication: HIGH DENSITY LIPOPROTEIN DECREASED
     Dates: start: 201401
  6. NICOTINIC ACID [Suspect]
     Active Substance: NIACIN
     Indication: BLOOD TRIGLYCERIDES INCREASED

REACTIONS (1)
  - Flushing [Unknown]
